FAERS Safety Report 17144553 (Version 1)
Quarter: 2019Q4

REPORT INFORMATION
  Report Type: Spontaneous
  Country: GB (occurrence: GB)
  Receive Date: 20191212
  Receipt Date: 20191212
  Transmission Date: 20200122
  Serious: Yes (Other)
  Sender: FDA-Public Use
  Company Number: GB-SA-2019SA339589

PATIENT
  Age: 76 Year
  Sex: Male

DRUGS (1)
  1. CABAZITAXEL [Suspect]
     Active Substance: CABAZITAXEL
     Indication: PROSTATE CANCER
     Dosage: 20 MG/M2, UNK
     Route: 042
     Dates: start: 20181019, end: 20190424

REACTIONS (3)
  - Free prostate-specific antigen increased [Unknown]
  - Chest pain [Unknown]
  - Metastases to bone [Unknown]

NARRATIVE: CASE EVENT DATE: 20190220
